FAERS Safety Report 24938427 (Version 1)
Quarter: 2025Q1

REPORT INFORMATION
  Report Type: Spontaneous
  Country: SE (occurrence: SE)
  Receive Date: 20250206
  Receipt Date: 20250206
  Transmission Date: 20250409
  Serious: Yes (Other)
  Sender: JUBILANT
  Company Number: SE-JUBILANT CADISTA PHARMACEUTICALS-2025JUB00007

PATIENT

DRUGS (3)
  1. LAMOTRIGINE [Suspect]
     Active Substance: LAMOTRIGINE
  2. LAMOTRIGINE [Suspect]
     Active Substance: LAMOTRIGINE
  3. UNSPECIFIED INGREDIENT [Suspect]
     Active Substance: UNSPECIFIED INGREDIENT

REACTIONS (3)
  - Neonatal asphyxia [Unknown]
  - Feeling jittery [Unknown]
  - Exposure via breast milk [Unknown]
